FAERS Safety Report 11431010 (Version 3)
Quarter: 2015Q4

REPORT INFORMATION
  Report Type: Report from Study
  Country: US (occurrence: US)
  Receive Date: 20150828
  Receipt Date: 20151211
  Transmission Date: 20160304
  Serious: No
  Sender: FDA-Public Use
  Company Number: PHEH2015US014519

PATIENT

DRUGS (1)
  1. SANDOSTATIN LAR DEPOT [Suspect]
     Active Substance: OCTREOTIDE ACETATE
     Indication: PRODUCT USED FOR UNKNOWN INDICATION
     Dosage: 30 MG, UNK
     Route: 030

REACTIONS (5)
  - Product quality issue [Unknown]
  - Underdose [Unknown]
  - Skin disorder [Unknown]
  - Needle issue [Unknown]
  - Syringe issue [Unknown]

NARRATIVE: CASE EVENT DATE: 20150724
